FAERS Safety Report 16302997 (Version 2)
Quarter: 2020Q1

REPORT INFORMATION
  Report Type: Spontaneous
  Country: US (occurrence: US)
  Receive Date: 20190513
  Receipt Date: 20200121
  Transmission Date: 20200409
  Serious: Yes (Other)
  Sender: FDA-Public Use
  Company Number: US-ROCHE-2314562

PATIENT
  Age: 32 Week
  Sex: Male

DRUGS (1)
  1. RANIBIZUMAB. [Suspect]
     Active Substance: RANIBIZUMAB
     Indication: RETINOPATHY OF PREMATURITY
     Route: 065

REACTIONS (5)
  - Retinal neovascularisation [Unknown]
  - Disease recurrence [Unknown]
  - Retinopathy of prematurity [Unknown]
  - Off label use [Unknown]
  - Product use in unapproved indication [Unknown]
